FAERS Safety Report 20153140 (Version 2)
Quarter: 2022Q1

REPORT INFORMATION
  Report Type: Report from Study
  Country: US (occurrence: US)
  Receive Date: 20211206
  Receipt Date: 20220103
  Transmission Date: 20220423
  Serious: Yes (Hospitalization, Other)
  Sender: FDA-Public Use
  Company Number: US-MALLINCKRODT-T202102825

PATIENT
  Sex: Male

DRUGS (5)
  1. CORTICOTROPIN [Suspect]
     Active Substance: CORTICOTROPIN
     Indication: Nephrotic syndrome
     Dosage: 0.5 MILLILITER (40 UNITS), WEEKLY
     Route: 065
     Dates: start: 20200909
  2. CORTICOTROPIN [Suspect]
     Active Substance: CORTICOTROPIN
     Dosage: 0.25 MILLILITER (20 UNITS), WEEKLY
     Route: 065
  3. CORTICOTROPIN [Suspect]
     Active Substance: CORTICOTROPIN
     Dosage: 0.5 MILLILITER (40 UNITS), WEEKLY
     Route: 065
     Dates: end: 202110
  4. CORTICOTROPIN [Suspect]
     Active Substance: CORTICOTROPIN
     Dosage: 40 UNITS ONCE A WEEK
     Route: 065
     Dates: start: 20200909
  5. PREDNISONE [Suspect]
     Active Substance: PREDNISONE
     Indication: Product used for unknown indication
     Dosage: UNK
     Route: 065

REACTIONS (18)
  - Orbital infection [Unknown]
  - Thrombosis [Unknown]
  - Hallucination [Unknown]
  - Adrenal insufficiency [Unknown]
  - Cellulitis [Unknown]
  - Optic neuritis [Unknown]
  - Sinus operation [Unknown]
  - Sinus disorder [Unknown]
  - Feeling abnormal [Unknown]
  - Anxiety [Not Recovered/Not Resolved]
  - Tendon rupture [Unknown]
  - Ligament disorder [Unknown]
  - Tendon disorder [Unknown]
  - Insomnia [Not Recovered/Not Resolved]
  - Euphoric mood [Unknown]
  - Poor quality sleep [Unknown]
  - Therapeutic product effect incomplete [Unknown]
  - Product dose omission issue [Unknown]

NARRATIVE: CASE EVENT DATE: 20210101
